FAERS Safety Report 8044273-5 (Version None)
Quarter: 2012Q1

REPORT INFORMATION
  Report Type: 
  Country: None (occurrence: None)
  Receive Date: 20120113
  Receipt Date: 20120106
  Transmission Date: 20120608
  Serious: Yes (Death)
  Sender: FDA-Public Use
  Company Number: US-SANOFI-AVENTIS-2011SA085432

PATIENT
  Age: 77 Year
  Sex: Female
  Weight: 54.1 kg

DRUGS (11)
  1. CALCIUM CARBONATE [Concomitant]
  2. POTASSIUM CHLORIDE [Concomitant]
  3. AVELOX [Concomitant]
     Indication: URINARY TRACT INFECTION
     Dates: start: 20111201, end: 20111201
  4. LOTREL [Concomitant]
  5. SPIRIVA [Concomitant]
  6. LORTAB [Concomitant]
  7. CABAZITAXEL [Suspect]
     Route: 041
     Dates: start: 20111214, end: 20111214
  8. HYDROCHLOROTHIAZIDE [Concomitant]
  9. LOPERAMIDE [Concomitant]
  10. VITAMINS NOS [Concomitant]
  11. VENTOLIN [Concomitant]

REACTIONS (1)
  - DEATH [None]
